FAERS Safety Report 9630418 (Version 2)
Quarter: 2015Q4

REPORT INFORMATION
  Report Type: Report from Study
  Country: US (occurrence: US)
  Receive Date: 20131018
  Receipt Date: 20151001
  Transmission Date: 20160305
  Serious: Yes (Hospitalization)
  Sender: FDA-Public Use
  Company Number: US-ROCHE-1290176

PATIENT
  Age: 39 Year
  Sex: Male
  Weight: 81.27 kg

DRUGS (42)
  1. AVASTIN [Suspect]
     Active Substance: BEVACIZUMAB
     Indication: COLON CANCER
     Dosage: 5 MG/KG EVERY 4 WEEKS
     Route: 041
     Dates: start: 20080205
  2. AVASTIN [Suspect]
     Active Substance: BEVACIZUMAB
     Route: 042
  3. CLARITIN [Concomitant]
     Active Substance: LORATADINE
     Route: 065
  4. KLOR-CON [Concomitant]
     Active Substance: POTASSIUM CHLORIDE
     Route: 065
  5. OPIUM TINCTURE [Concomitant]
     Active Substance: OPIUM TINCTURE
     Dosage: 10 MG/ML
     Route: 042
  6. CAMPTOSAR [Concomitant]
     Active Substance: IRINOTECAN HYDROCHLORIDE
     Route: 065
  7. FLUOROURACIL. [Concomitant]
     Active Substance: FLUOROURACIL
     Route: 065
  8. ATROPINE. [Concomitant]
     Active Substance: ATROPINE
     Route: 058
  9. LORAZEPAM. [Concomitant]
     Active Substance: LORAZEPAM
     Route: 065
  10. AVASTIN [Suspect]
     Active Substance: BEVACIZUMAB
     Route: 042
  11. LANTUS [Concomitant]
     Active Substance: INSULIN GLARGINE
     Route: 065
  12. CAMPTOSAR [Concomitant]
     Active Substance: IRINOTECAN HYDROCHLORIDE
     Dosage: GIVE OVER 90 MINUTES
     Route: 041
  13. LEUCOVORIN. [Concomitant]
     Active Substance: LEUCOVORIN
     Route: 065
  14. ARANESP [Concomitant]
     Active Substance: DARBEPOETIN ALFA
     Route: 058
  15. AVASTIN [Suspect]
     Active Substance: BEVACIZUMAB
     Route: 042
  16. AVASTIN [Suspect]
     Active Substance: BEVACIZUMAB
     Route: 042
  17. CAMPTOSAR [Concomitant]
     Active Substance: IRINOTECAN HYDROCHLORIDE
     Route: 065
  18. DECADRON [Concomitant]
     Active Substance: DEXAMETHASONE
     Route: 040
  19. FLUOROURACIL. [Concomitant]
     Active Substance: FLUOROURACIL
     Route: 065
  20. FLUOROURACIL. [Concomitant]
     Active Substance: FLUOROURACIL
     Route: 065
  21. NEULASTA [Concomitant]
     Active Substance: PEGFILGRASTIM
     Route: 065
  22. NEULASTA [Concomitant]
     Active Substance: PEGFILGRASTIM
     Route: 065
  23. INFLUENZA TVS 05 PEDI VAC [Concomitant]
     Route: 065
     Dates: start: 20090915
  24. NOVOLOG [Concomitant]
     Active Substance: INSULIN ASPART
     Dosage: AS DIRECTED
     Route: 065
  25. LEUCOVORIN. [Concomitant]
     Active Substance: LEUCOVORIN
     Route: 065
  26. COMPAZINE [Concomitant]
     Active Substance: PROCHLORPERAZINE MALEATE
     Route: 048
  27. AVASTIN [Suspect]
     Active Substance: BEVACIZUMAB
     Route: 042
  28. AVASTIN [Suspect]
     Active Substance: BEVACIZUMAB
     Route: 042
     Dates: end: 20130124
  29. FLUOROURACIL. [Concomitant]
     Active Substance: FLUOROURACIL
     Route: 042
  30. ALOXI [Concomitant]
     Active Substance: PALONOSETRON HYDROCHLORIDE
     Route: 042
  31. LORAZEPAM. [Concomitant]
     Active Substance: LORAZEPAM
     Route: 042
  32. AVASTIN [Suspect]
     Active Substance: BEVACIZUMAB
     Indication: MALIGNANT PERITONEAL NEOPLASM
     Route: 042
  33. LOMOTIL (UNITED STATES) [Concomitant]
     Dosage: TWICE A DAY
     Route: 048
  34. CELEXA (UNITED STATES) [Concomitant]
     Dosage: DAILY
     Route: 065
  35. FLUOROURACIL. [Concomitant]
     Active Substance: FLUOROURACIL
     Route: 065
  36. ZOFRAN [Concomitant]
     Active Substance: ONDANSETRON HYDROCHLORIDE
     Dosage: EVERY 8HOURS
     Route: 048
  37. ZOFRAN [Concomitant]
     Active Substance: ONDANSETRON HYDROCHLORIDE
     Route: 048
  38. LEUCOVORIN. [Concomitant]
     Active Substance: LEUCOVORIN
     Dosage: GIVE OVER120 MINUTES
     Route: 041
  39. LEUCOVORIN. [Concomitant]
     Active Substance: LEUCOVORIN
     Route: 065
  40. FLUOROURACIL. [Concomitant]
     Active Substance: FLUOROURACIL
     Route: 065
  41. DECADRON [Concomitant]
     Active Substance: DEXAMETHASONE
     Route: 065
  42. LIDOCAINE VISCOUS [Concomitant]
     Active Substance: LIDOCAINE HYDROCHLORIDE
     Route: 048

REACTIONS (18)
  - Mucosal inflammation [Unknown]
  - Weight decreased [Recovered/Resolved]
  - Muscle spasms [Unknown]
  - Fatigue [Unknown]
  - Alopecia [Unknown]
  - Off label use [Unknown]
  - Flatulence [Unknown]
  - Neuropathy peripheral [Unknown]
  - Anxiety [Unknown]
  - Vomiting [Recovered/Resolved]
  - Skin warm [Unknown]
  - Dysgeusia [Unknown]
  - Paraesthesia [Unknown]
  - Dry skin [Unknown]
  - Nausea [Recovered/Resolved]
  - Hypoaesthesia [Unknown]
  - Small intestinal obstruction [Recovered/Resolved]
  - Diarrhoea [Unknown]

NARRATIVE: CASE EVENT DATE: 200804
